FAERS Safety Report 8492381-7 (Version None)
Quarter: 2012Q3

REPORT INFORMATION
  Report Type: 
  Country: None (occurrence: None)
  Receive Date: 20120706
  Receipt Date: 20120703
  Transmission Date: 20120928
  Serious: Yes (Death, Hospitalization, Other)
  Sender: FDA-Public Use
  Company Number: JP-GENZYME-THYM-1002587

PATIENT
  Sex: Female
  Weight: 41 kg

DRUGS (15)
  1. METHOTREXATE [Concomitant]
     Dosage: UNK
     Route: 065
     Dates: start: 20110118, end: 20110118
  2. FLUCONAZOLE [Concomitant]
     Indication: INFECTION PROPHYLAXIS
     Dosage: UNK
     Route: 065
     Dates: start: 20110106, end: 20110325
  3. CEFEPIME HYDROCHLORIDE [Concomitant]
     Indication: FEBRILE NEUTROPENIA
     Dosage: UNK
     Route: 065
     Dates: start: 20100101, end: 20110110
  4. ACYCLOVIR [Concomitant]
     Indication: INFECTION PROPHYLAXIS
     Dosage: UNK
     Route: 065
     Dates: start: 20110106, end: 20110325
  5. THYMOGLOBULIN [Suspect]
     Indication: BONE MARROW CONDITIONING REGIMEN
     Dosage: 50 MG, QD
     Route: 042
     Dates: start: 20110110, end: 20110110
  6. METHOTREXATE [Concomitant]
     Indication: PROPHYLAXIS AGAINST GRAFT VERSUS HOST DISEASE
     Dosage: UNK
     Route: 065
     Dates: start: 20110113, end: 20110113
  7. METHOTREXATE [Concomitant]
     Dosage: UNK
     Route: 065
     Dates: start: 20110128, end: 20110128
  8. METHOTREXATE [Concomitant]
     Dosage: UNK
     Route: 065
     Dates: start: 20110115, end: 20110115
  9. SULFAMETHOPRIM [Concomitant]
     Indication: INFECTION PROPHYLAXIS
     Dosage: UNK
     Route: 065
  10. BUSULFAN [Concomitant]
     Indication: ADULT T-CELL LYMPHOMA/LEUKAEMIA
     Dosage: UNK
     Route: 042
     Dates: start: 20110106, end: 20110107
  11. FILGRASTIM [Concomitant]
     Indication: INFECTION PROPHYLAXIS
     Dosage: UNK
     Route: 065
     Dates: start: 20110118, end: 20110203
  12. CIPROFLOXACIN [Concomitant]
     Indication: INFECTION PROPHYLAXIS
     Dosage: UNK
     Route: 065
     Dates: start: 20110105, end: 20110203
  13. FLUDARA [Suspect]
     Indication: ADULT T-CELL LYMPHOMA/LEUKAEMIA
     Dosage: 40 MG, QD
     Route: 042
     Dates: start: 20110104, end: 20110109
  14. METHYLPREDNISOLONE SODIUM SUCCINATE [Suspect]
     Indication: PYREXIA
     Dosage: UNK
     Route: 065
  15. TACROLIMUS [Concomitant]
     Indication: PROPHYLAXIS AGAINST GRAFT VERSUS HOST DISEASE
     Dosage: UNK
     Route: 065
     Dates: start: 20110111, end: 20110325

REACTIONS (6)
  - STAPHYLOCOCCAL INFECTION [None]
  - ENGRAFTMENT SYNDROME [None]
  - HISTIOCYTOSIS HAEMATOPHAGIC [None]
  - GRAFT VERSUS HOST DISEASE [None]
  - VIRAL INFECTION [None]
  - FEBRILE NEUTROPENIA [None]
